FAERS Safety Report 5590325-9 (Version None)
Quarter: 2007Q4

REPORT INFORMATION
  Report Type: 
  Country: None (occurrence: None)
  Receive Date: 20071214
  Receipt Date: 20070801
  Transmission Date: 20080405
  Serious: Yes (Hospitalization, Other)
  Sender: FDA-Public Use
  Company Number: 2007063846

PATIENT
  Age: 27 Year
  Sex: Female
  Weight: 45.45 kg

DRUGS (2)
  1. XANAX [Suspect]
     Indication: ANXIETY
     Dosage: 20 MG (20 MG,1 IN 1 D)
     Dates: start: 20030101, end: 20070701
  2. ZOLOFT [Suspect]
     Dates: start: 20070701

REACTIONS (9)
  - CONVULSION [None]
  - DECREASED APPETITE [None]
  - HEADACHE [None]
  - INSOMNIA [None]
  - LACK OF SPONTANEOUS SPEECH [None]
  - PAIN [None]
  - SWELLING [None]
  - VOMITING [None]
  - WITHDRAWAL SYNDROME [None]
